FAERS Safety Report 17255628 (Version 1)
Quarter: 2020Q1

REPORT INFORMATION
  Report Type: Spontaneous
  Country: US (occurrence: US)
  Receive Date: 20200110
  Receipt Date: 20200110
  Transmission Date: 20200409
  Serious: No
  Sender: FDA-Public Use
  Company Number: US-LUPIN PHARMACEUTICALS INC.-2019-08567

PATIENT
  Age: 1 Year
  Sex: Male
  Weight: 11 kg

DRUGS (1)
  1. FAMOTIDINE FOR ORAL SUSPENSION USP 40 MG/5ML [Suspect]
     Active Substance: FAMOTIDINE
     Indication: GASTROOESOPHAGEAL REFLUX DISEASE
     Dosage: 8 MILLIGRAM, BID (8MG (1ML))
     Route: 048
     Dates: start: 201910

REACTIONS (3)
  - Poor quality product administered [Unknown]
  - Product contamination physical [Unknown]
  - No adverse event [Unknown]

NARRATIVE: CASE EVENT DATE: 20191217
